FAERS Safety Report 10398574 (Version 5)
Quarter: 2014Q4

REPORT INFORMATION
  Report Type: Report from Study
  Country: FR (occurrence: FR)
  Receive Date: 20140821
  Receipt Date: 20141022
  Transmission Date: 20150528
  Serious: Yes (Death, Hospitalization)
  Sender: FDA-Public Use
  Company Number: PHHY2014FR021837

PATIENT
  Age: 49 Year
  Sex: Female

DRUGS (2)
  1. LDK378 [Suspect]
     Active Substance: CERITINIB
     Indication: LUNG ADENOCARCINOMA
     Dosage: 750 MG, UNK
     Route: 048
     Dates: start: 20130917, end: 20131003
  2. LDK378 [Suspect]
     Active Substance: CERITINIB
     Indication: LUNG NEOPLASM MALIGNANT

REACTIONS (9)
  - Jaundice [Fatal]
  - Nausea [Recovered/Resolved]
  - Ascites [Fatal]
  - Hepatic encephalopathy [Fatal]
  - Vomiting [Recovered/Resolved]
  - Metastases to liver [Fatal]
  - Decreased appetite [Recovered/Resolved]
  - Malignant neoplasm progression [Fatal]
  - Fatigue [Recovered/Resolved]

NARRATIVE: CASE EVENT DATE: 20130917
